FAERS Safety Report 8566955 (Version 2)
Quarter: 2013Q1

REPORT INFORMATION
  Report Type: Spontaneous
  Country: US (occurrence: US)
  Receive Date: 20120517
  Receipt Date: 20130117
  Transmission Date: 20140127
  Serious: Yes (Death, Hospitalization)
  Sender: FDA-Public Use
  Company Number: US-INCYTE CORPORATION-2012IN000783

PATIENT
  Age: 58 None
  Sex: Female

DRUGS (1)
  1. JAKAFI [Suspect]
     Indication: MYELOFIBROSIS
     Dosage: 15 MG, BID
     Route: 048
     Dates: start: 20120209, end: 20120411

REACTIONS (4)
  - Renal cancer metastatic [Fatal]
  - Haemorrhage [Unknown]
  - Platelet count decreased [Unknown]
  - Metastatic carcinoma of the bladder [None]
